FAERS Safety Report 7909766-7 (Version None)
Quarter: 2011Q4

REPORT INFORMATION
  Report Type: 
  Country: None (occurrence: None)
  Receive Date: 20111111
  Receipt Date: 20111109
  Transmission Date: 20120403
  Serious: Yes (Other)
  Sender: FDA-Public Use
  Company Number: FR-PFIZER INC-2011195972

PATIENT
  Age: 64 Year
  Sex: Male

DRUGS (1)
  1. ATORVASTATIN CALCIUM [Suspect]
     Dosage: 10 MG, UNK

REACTIONS (4)
  - AMYOTROPHIC LATERAL SCLEROSIS [None]
  - TRANSAMINASES INCREASED [None]
  - PALPITATIONS [None]
  - RHABDOMYOLYSIS [None]
